FAERS Safety Report 7371250-X (Version None)
Quarter: 2011Q1

REPORT INFORMATION
  Report Type: 
  Country: None (occurrence: None)
  Receive Date: 20110321
  Receipt Date: 20110321
  Transmission Date: 20110831
  Serious: Yes (Death)
  Sender: FDA-Public Use
  Company Number: None

PATIENT
  Age: 85 Year
  Sex: Female
  Weight: 47.6277 kg

DRUGS (3)
  1. SEROQUEL [Suspect]
     Indication: DEMENTIA
     Dosage: 2XDAY ON AND OFF FOR ONE MONTH
     Dates: start: 20100618, end: 20100715
  2. SEROQUEL [Suspect]
     Indication: PERSONALITY DISORDER
     Dosage: 2XDAY ON AND OFF FOR ONE MONTH
     Dates: start: 20100618, end: 20100715
  3. SEROQUEL [Suspect]
     Indication: ANGER
     Dosage: 2XDAY ON AND OFF FOR ONE MONTH
     Dates: start: 20100618, end: 20100715

REACTIONS (1)
  - ADVERSE EVENT [None]
